FAERS Safety Report 5663873-0 (Version None)
Quarter: 2008Q1

REPORT INFORMATION
  Report Type: 
  Country: None (occurrence: None)
  Receive Date: 20080311
  Receipt Date: 20080303
  Transmission Date: 20080703
  Serious: Yes (Hospitalization)
  Sender: FDA-Public Use
  Company Number: GXKR2008DE01647

PATIENT
  Age: 24 Year
  Sex: Female
  Weight: 60 kg

DRUGS (1)
  1. PAROXAT (NGX)(PAROXETINE) FILM-COATED TABLET, 30MG [Suspect]
     Dosage: 15 MG, QD, ORAL
     Route: 048
     Dates: start: 20080205, end: 20080207

REACTIONS (5)
  - BRADYCARDIA [None]
  - CONFUSIONAL STATE [None]
  - DIZZINESS [None]
  - DYSARTHRIA [None]
  - HEMIPLEGIA [None]
